FAERS Safety Report 24568657 (Version 1)
Quarter: 2024Q4

REPORT INFORMATION
  Report Type: Report from Study
  Country: US (occurrence: US)
  Receive Date: 20241031
  Receipt Date: 20241031
  Transmission Date: 20250114
  Serious: Yes (Hospitalization, Other)
  Sender: BAYER HEALTHCARE PHARMACEUTICALS INC.
  Company Number: US-BAYER-2024A105484

PATIENT
  Sex: Female
  Weight: 70.748 kg

DRUGS (12)
  1. ADEMPAS [Suspect]
     Active Substance: RIOCIGUAT
     Indication: Pulmonary arterial hypertension
     Dosage: UNK
     Dates: start: 20240508
  2. ADEMPAS [Suspect]
     Active Substance: RIOCIGUAT
     Indication: Pulmonary arterial hypertension
     Dosage: 2.5 MG, TID
     Route: 048
  3. ADEMPAS [Suspect]
     Active Substance: RIOCIGUAT
     Indication: Pulmonary arterial hypertension
     Dosage: 2.5 MG, TID
     Route: 048
  4. TYVASO [Suspect]
     Active Substance: TREPROSTINIL
  5. CRESTOR [Concomitant]
     Active Substance: ROSUVASTATIN CALCIUM
  6. TIZANIDINE HYDROCHLORIDE [Concomitant]
     Active Substance: TIZANIDINE HYDROCHLORIDE
  7. TYLENOL EXTRA STRENGTH [Concomitant]
     Active Substance: ACETAMINOPHEN
  8. FLONASE ALLERGY RELIEF [Concomitant]
     Active Substance: FLUTICASONE PROPIONATE
  9. OPSUMIT [Concomitant]
     Active Substance: MACITENTAN
  10. RENVELA [Concomitant]
     Active Substance: SEVELAMER CARBONATE
  11. MIDODRINE HYDROCHLORIDE [Concomitant]
     Active Substance: MIDODRINE HYDROCHLORIDE
  12. SOTATERCEPT [Suspect]
     Active Substance: SOTATERCEPT

REACTIONS (15)
  - Pneumonia [None]
  - Dialysis [None]
  - Blood pressure decreased [None]
  - Arthropathy [None]
  - Gait disturbance [None]
  - Dyspnoea [Recovering/Resolving]
  - Walking aid user [Recovered/Resolved]
  - Cough [None]
  - General physical health deterioration [Recovering/Resolving]
  - Retching [None]
  - Vomiting [None]
  - Nausea [Not Recovered/Not Resolved]
  - Headache [None]
  - Epistaxis [None]
  - Hypotension [Not Recovered/Not Resolved]
